FAERS Safety Report 12502375 (Version 3)
Quarter: 2016Q3

REPORT INFORMATION
  Report Type: Spontaneous
  Country: FR (occurrence: FR)
  Receive Date: 20160627
  Receipt Date: 20160907
  Transmission Date: 20161109
  Serious: Yes (Disabling, Congenital Anomaly)
  Sender: FDA-Public Use
  Company Number: FR-ABBVIE-16P-056-1661390-00

PATIENT
  Sex: Female

DRUGS (1)
  1. DEPAKINE [Suspect]
     Active Substance: VALPROATE SODIUM
     Indication: MATERNAL EXPOSURE TIMING UNSPECIFIED
     Route: 064

REACTIONS (9)
  - Dysmorphism [Not Recovered/Not Resolved]
  - Foetal exposure during pregnancy [Unknown]
  - Congenital anomaly [Not Recovered/Not Resolved]
  - Renal dysplasia [Unknown]
  - Speech disorder [Unknown]
  - Chronic kidney disease [Unknown]
  - Autism [Unknown]
  - Developmental delay [Not Recovered/Not Resolved]
  - Abnormal behaviour [Not Recovered/Not Resolved]

NARRATIVE: CASE EVENT DATE: 1994
